FAERS Safety Report 24992428 (Version 3)
Quarter: 2025Q3

REPORT INFORMATION
  Report Type: Report from Study
  Country: US (occurrence: US)
  Receive Date: 20250220
  Receipt Date: 20250713
  Transmission Date: 20251021
  Serious: Yes (Death, Other)
  Sender: BAUSCH AND LOMB
  Company Number: US-BAUSCHBL-2025BNL001701

PATIENT
  Age: 86 Year
  Sex: Female

DRUGS (1)
  1. XIIDRA [Suspect]
     Active Substance: LIFITEGRAST
     Indication: Dry eye
     Dosage: THERAPY STARTED 2-3 YEARS AGO
     Route: 047

REACTIONS (6)
  - Death [Fatal]
  - Critical illness [Unknown]
  - Headache [Unknown]
  - Product use issue [Unknown]
  - Product dose omission issue [Unknown]
  - Inability to afford medication [Unknown]

NARRATIVE: CASE EVENT DATE: 20250704
